FAERS Safety Report 9506094 (Version 1)
Quarter: 2013Q1

REPORT INFORMATION
  Report Type: Spontaneous
  Country: US (occurrence: None)
  Receive Date: 20130305
  Receipt Date: 20130305
  Transmission Date: 20140127
  Serious: No
  Sender: FDA-Public Use
  Company Number: 1000039408

PATIENT
  Age: 64 Year
  Sex: Female

DRUGS (6)
  1. DALIRESP (ROFLUMILAST) (500 MICROGRAM, TABLETS) [Suspect]
     Indication: CHRONIC OBSTRUCTIVE PULMONARY DISEASE
     Dosage: 500 MCG (500 MCG, 1 IN 1)
     Route: 048
     Dates: start: 20121005
  2. SPIRIVA (TIOTROPIUM BROMIDE) (TIOTROPIUM BROMIDE) [Concomitant]
  3. ADVAIR (SERETIDE) (SERETIDE) [Concomitant]
  4. ALBUTEROL (ALBUTEROL) [Concomitant]
  5. PREDNISONE (PREDNISONE) (PREDNISONE) [Concomitant]
  6. VENLAFAXINE (VENLAFAXINE) (VENLAFAXINE) [Concomitant]

REACTIONS (2)
  - Nausea [None]
  - Tremor [None]
